FAERS Safety Report 9832259 (Version 3)
Quarter: 2014Q3

REPORT INFORMATION
  Report Type: Report from Study
  Country: AR (occurrence: AR)
  Receive Date: 20140121
  Receipt Date: 20140722
  Transmission Date: 20150326
  Serious: Yes (Other)
  Sender: FDA-Public Use
  Company Number: AR-BRISTOL-MYERS SQUIBB COMPANY-16993289

PATIENT
  Age: 62 Year
  Sex: Female

DRUGS (2)
  1. ORENCIA [Suspect]
     Active Substance: ABATACEPT
     Indication: RHEUMATOID ARTHRITIS
     Dosage: INFUSIONS ON JUL12 AUG12 SEP12,?INTERRUPTED ON 08JAN2014
     Dates: start: 2009
  2. DIPHENHYDRAMINE [Concomitant]
     Active Substance: DIPHENHYDRAMINE

REACTIONS (3)
  - Erythema [Unknown]
  - Pruritus [Unknown]
  - Hernia [Recovering/Resolving]

NARRATIVE: CASE EVENT DATE: 201207
